FAERS Safety Report 24460627 (Version 1)
Quarter: 2024Q4

REPORT INFORMATION
  Report Type: Report from Study
  Country: US (occurrence: US)
  Receive Date: 20241018
  Receipt Date: 20241018
  Transmission Date: 20250114
  Serious: No
  Sender: ROCHE
  Company Number: US-ROCHE-3547800

PATIENT
  Age: 47 Year
  Sex: Female

DRUGS (7)
  1. RITUXAN [Suspect]
     Active Substance: RITUXIMAB
     Indication: Systemic lupus erythematosus
     Dosage: THAN EVERY 6 MONTH
     Route: 041
  2. DETROL [Concomitant]
     Active Substance: TOLTERODINE TARTRATE
  3. COZAAR [Concomitant]
     Active Substance: LOSARTAN POTASSIUM
  4. OMEPRAZOLE [Concomitant]
     Active Substance: OMEPRAZOLE
  5. TOPAMAX [Concomitant]
     Active Substance: TOPIRAMATE
  6. KEPPRA [Concomitant]
     Active Substance: LEVETIRACETAM
  7. PLAQUINOL [Concomitant]
     Active Substance: HYDROXYCHLOROQUINE SULFATE

REACTIONS (2)
  - Off label use [Unknown]
  - No adverse event [Unknown]
